FAERS Safety Report 9526003 (Version 1)
Quarter: 2013Q1

REPORT INFORMATION
  Report Type: Spontaneous
  Country: US (occurrence: None)
  Receive Date: 20130314
  Receipt Date: 20130314
  Transmission Date: 20140127
  Serious: No
  Sender: FDA-Public Use
  Company Number: 1301USA003255

PATIENT
  Age: 54 Year
  Sex: Male

DRUGS (4)
  1. PEG-INTRON [Suspect]
     Indication: HEPATITIS C
     Dates: start: 20120107, end: 20120925
  2. VICTRELIS (BOCEPREVIR) CAPSULE [Suspect]
     Dates: start: 20120208, end: 20120925
  3. RIBAVIRIN (RIBAVIRIN) TABLET, 200 MG [Suspect]
     Dates: start: 20120107, end: 20120925
  4. IBUPROFEN (IBUPROFEN) [Concomitant]

REACTIONS (1)
  - Fatigue [None]
